FAERS Safety Report 23458924 (Version 1)
Quarter: 2024Q1

REPORT INFORMATION
  Report Type: Report from Study
  Country: US (occurrence: US)
  Receive Date: 20240131
  Receipt Date: 20240131
  Transmission Date: 20240410
  Serious: Yes (Other)
  Sender: FDA-Public Use
  Company Number: US-ABBVIE-5605157

PATIENT
  Sex: Female

DRUGS (1)
  1. SKYRIZI [Suspect]
     Active Substance: RISANKIZUMAB-RZAA
     Indication: Product used for unknown indication
     Route: 058
     Dates: start: 20231229

REACTIONS (5)
  - Deafness [Unknown]
  - Vertigo [Unknown]
  - Viral infection [Recovering/Resolving]
  - Ageusia [Unknown]
  - Anosmia [Unknown]
